FAERS Safety Report 8913400 (Version 1)
Quarter: 2012Q4

REPORT INFORMATION
  Report Type: 
  Country: US (occurrence: US)
  Receive Date: 20121119
  Receipt Date: 20121119
  Transmission Date: 20130627
  Serious: Yes (Hospitalization)
  Sender: FDA-Public Use
  Company Number: US-BAYER-2012-115885

PATIENT
  Age: 53 Year
  Sex: Female

DRUGS (5)
  1. BETASERON [Suspect]
     Indication: MULTIPLE SCLEROSIS
     Dosage: 8 miu, QOD
     Route: 058
     Dates: start: 20121016
  2. BETASERON [Suspect]
     Indication: MULTIPLE SCLEROSIS
     Dosage: 4 miu, QOD
     Route: 058
  3. BENADRYL [Concomitant]
     Indication: PREMEDICATION
  4. IBUPROFEN [Concomitant]
     Indication: PREMEDICATION
  5. LYRICA [Concomitant]
     Indication: FIBROMYALGIA
     Dosage: UNK
     Dates: start: 20121016

REACTIONS (14)
  - Hypoaesthesia [Not Recovered/Not Resolved]
  - Paraesthesia [Not Recovered/Not Resolved]
  - Headache [Not Recovered/Not Resolved]
  - Pyrexia [Not Recovered/Not Resolved]
  - Pain [Not Recovered/Not Resolved]
  - Head discomfort [Not Recovered/Not Resolved]
  - Hypoaesthesia [Not Recovered/Not Resolved]
  - Ear discomfort [Not Recovered/Not Resolved]
  - Chills [Not Recovered/Not Resolved]
  - Pyrexia [Not Recovered/Not Resolved]
  - Hypertension [Not Recovered/Not Resolved]
  - Feeling abnormal [None]
  - Influenza like illness [Not Recovered/Not Resolved]
  - Burning sensation [Not Recovered/Not Resolved]
